FAERS Safety Report 12083033 (Version 1)
Quarter: 2016Q1

REPORT INFORMATION
  Report Type: Spontaneous
  Country: US (occurrence: None)
  Receive Date: 20160216
  Receipt Date: 20160216
  Transmission Date: 20160526
  Serious: Yes (Death)
  Sender: FDA-Public Use
  Company Number: None

PATIENT
  Age: 73 Year
  Sex: Female
  Weight: 82 kg

DRUGS (9)
  1. ATORVASTATIN [Concomitant]
     Active Substance: ATORVASTATIN
  2. VENLAFAXINE [Concomitant]
     Active Substance: VENLAFAXINE HYDROCHLORIDE
  3. IPILUMUMAB [Suspect]
     Active Substance: IPILIMUMAB
     Indication: MALIGNANT MELANOMA
     Route: 042
     Dates: start: 20160108, end: 20160108
  4. LANTUS [Concomitant]
     Active Substance: INSULIN GLARGINE
  5. NORVASC [Concomitant]
     Active Substance: AMLODIPINE BESYLATE
  6. NIVOLUMAB [Suspect]
     Active Substance: NIVOLUMAB
     Route: 042
     Dates: start: 20160108, end: 20160108
  7. METOPROLOL. [Concomitant]
     Active Substance: METOPROLOL
  8. GLIPIZIDE. [Concomitant]
     Active Substance: GLIPIZIDE
  9. LOSARTAN. [Concomitant]
     Active Substance: LOSARTAN

REACTIONS (5)
  - Coronary artery disease [None]
  - Oedema [None]
  - Atrioventricular block [None]
  - Dyspnoea [None]
  - No therapeutic response [None]

NARRATIVE: CASE EVENT DATE: 20160117
